FAERS Safety Report 21375463 (Version 4)
Quarter: 2023Q1

REPORT INFORMATION
  Report Type: Spontaneous
  Country: US (occurrence: US)
  Receive Date: 20220926
  Receipt Date: 20230102
  Transmission Date: 20230418
  Serious: Yes (Other)
  Sender: FDA-Public Use
  Company Number: US-BRISTOL-MYERS SQUIBB COMPANY-2022-111728

PATIENT
  Age: 67 Year
  Sex: Female

DRUGS (1)
  1. THALOMID [Suspect]
     Active Substance: THALIDOMIDE
     Indication: Plasma cell myeloma
     Dosage: TAKE ONE (1) CAPSULE BY MOUTH ONCE DAILY, PREFERABLY AT BEDTIME AND AT LEAST 1-HOUR AFTER THE?EVENIN
     Route: 048
     Dates: start: 20220720

REACTIONS (10)
  - Pain in extremity [Unknown]
  - Hypoaesthesia [Unknown]
  - Paraesthesia [Unknown]
  - Arthralgia [Unknown]
  - Fluid retention [Unknown]
  - Peripheral swelling [Unknown]
  - Neuropathy peripheral [Unknown]
  - Dehydration [Unknown]
  - Taste disorder [Unknown]
  - Weight decreased [Unknown]
